FAERS Safety Report 6453364-1 (Version None)
Quarter: 2009Q4

REPORT INFORMATION
  Report Type: 
  Country: None (occurrence: None)
  Receive Date: 20091117
  Receipt Date: 20091102
  Transmission Date: 20100525
  Serious: Yes (Hospitalization)
  Sender: FDA-Public Use
  Company Number: IDA-00192

PATIENT
  Age: 73 Year
  Sex: Female

DRUGS (7)
  1. PROPRANOLOL [Suspect]
     Indication: HYPERTENSION
     Dosage: ORAL FORMULATION: TABLET
     Route: 048
  2. BACTRIM [Suspect]
     Dosage: ORAL FORMULATION:
  3. NEORAL [Suspect]
     Dosage: 75 MG BID  ORAL FORMULATION
     Route: 048
     Dates: start: 20081221
  4. CELLCEPT [Suspect]
     Dosage: 1 G BID ORAL FORMULATION
     Route: 048
     Dates: start: 20081221
  5. RIMIFON [Suspect]
     Dosage: 150 MG DAILY ORAL FORMULATION
     Route: 048
     Dates: start: 20081221, end: 20090401
  6. PANTOPRAZOLE SODIUM [Suspect]
     Dosage: 20 MG DAILY ORAL FORMULATION
     Route: 048
     Dates: start: 20081221
  7. SOLUPRED (PREDNISOLONE SODIUM SULFOBENZOATE) [Suspect]
     Dosage: 10 MG DAILY ORAL FORMULATION
     Route: 048
     Dates: start: 20081221

REACTIONS (4)
  - ARTHRITIS [None]
  - HYPERURICAEMIA [None]
  - JOINT EFFUSION [None]
  - RENAL TRANSPLANT [None]
